FAERS Safety Report 10243082 (Version 4)
Quarter: 2014Q4

REPORT INFORMATION
  Report Type: Spontaneous
  Country: ES (occurrence: ES)
  Receive Date: 20140618
  Receipt Date: 20141215
  Transmission Date: 20150528
  Serious: Yes (Hospitalization)
  Sender: FDA-Public Use
  Company Number: ES-AMGEN INC.-ESPSP2014031638

PATIENT
  Age: 7 Year
  Sex: Male
  Weight: 26.5 kg

DRUGS (5)
  1. CEMIDON [Concomitant]
     Active Substance: ISONIAZID
     Indication: TUBERCULIN TEST POSITIVE
     Dosage: 1 DOSAGE FORM, DAILY
     Dates: start: 201402
  2. JUNIFEN [Concomitant]
     Dosage: UNK, THREE TIMES DAILY
  3. ACFOL [Concomitant]
     Active Substance: FOLIC ACID
     Indication: DRUG TOXICITY PROPHYLAXIS
     Dosage: 1 DOSAGE FORM, WEEKLY
  4. ENBREL [Suspect]
     Active Substance: ETANERCEPT
     Indication: JUVENILE IDIOPATHIC ARTHRITIS
     Dosage: 0.85 UNK, ONCE WEEKLY ( ON TUESDAYS)
     Route: 058
     Dates: start: 20140401
  5. METOJECT [Concomitant]
     Active Substance: METHOTREXATE SODIUM
     Indication: JUVENILE IDIOPATHIC ARTHRITIS
     Dosage: 20, ONCE WEEKLY (ON FRIDAYS)
     Dates: start: 201402

REACTIONS (6)
  - Mobility decreased [Not Recovered/Not Resolved]
  - Diarrhoea [Recovered/Resolved]
  - Drug ineffective [Not Recovered/Not Resolved]
  - Arthritis [Not Recovered/Not Resolved]
  - Inflammation [Not Recovered/Not Resolved]
  - Abnormal behaviour [Not Recovered/Not Resolved]

NARRATIVE: CASE EVENT DATE: 2014
